FAERS Safety Report 9231754 (Version 1)
Quarter: 2013Q2

REPORT INFORMATION
  Report Type: Spontaneous
  Country: IT (occurrence: IT)
  Receive Date: 20130415
  Receipt Date: 20130415
  Transmission Date: 20140414
  Serious: Yes (Hospitalization)
  Sender: FDA-Public Use
  Company Number: IT-BAYER-2013-047380

PATIENT
  Age: 76 Year
  Sex: Female

DRUGS (1)
  1. CARDIOASPIRIN [Suspect]
     Indication: PROPHYLAXIS
     Dosage: 100 MG, QD
     Route: 048
     Dates: start: 20110101, end: 20130318

REACTIONS (2)
  - Cerebral haemorrhage [Recovering/Resolving]
  - Headache [Recovering/Resolving]
